FAERS Safety Report 17827855 (Version 3)
Quarter: 2021Q2

REPORT INFORMATION
  Report Type: Spontaneous
  Country: US (occurrence: US)
  Receive Date: 20200527
  Receipt Date: 20210422
  Transmission Date: 20210717
  Serious: No
  Sender: FDA-Public Use
  Company Number: US-SA-2020SA133070

PATIENT
  Age: 22 Year
  Sex: Male

DRUGS (10)
  1. TRAZODONE HYDROCHLORIDE. [Concomitant]
     Active Substance: TRAZODONE HYDROCHLORIDE
     Dosage: UNK
  2. MELATONIN [Concomitant]
     Active Substance: MELATONIN
  3. ZYRTEC?D 12HR [Concomitant]
     Dosage: ZYRTEC?D 5 MG?120MG TAB.SR 12H
  4. ZYRTEC?D 12HR [Concomitant]
  5. MELATONIN [Concomitant]
     Active Substance: MELATONIN
  6. PREDNISONE. [Concomitant]
     Active Substance: PREDNISONE
  7. CITALOPRAM [Concomitant]
     Active Substance: CITALOPRAM HYDROBROMIDE
     Dosage: CITALOPRAM HBR 10 MG/5 ML SOLUTION
  8. DUPIXENT [Suspect]
     Active Substance: DUPILUMAB
     Indication: DERMATITIS ATOPIC
     Dosage: 300 MG (1 SYRINGE), QOW
     Dates: start: 20200517
  9. TRAZODONE HYDROCHLORIDE. [Concomitant]
     Active Substance: TRAZODONE HYDROCHLORIDE
  10. PEPCID F [Concomitant]

REACTIONS (5)
  - Nausea [Recovered/Resolved]
  - Dizziness [Recovered/Resolved]
  - Injection site induration [Unknown]
  - Injection site pain [Unknown]
  - Fear of injection [Unknown]

NARRATIVE: CASE EVENT DATE: 20200517
